FAERS Safety Report 7652935-4 (Version None)
Quarter: 2011Q3

REPORT INFORMATION
  Report Type: 
  Country: None (occurrence: None)
  Receive Date: 20110803
  Receipt Date: 20110801
  Transmission Date: 20111222
  Serious: Yes (Hospitalization)
  Sender: FDA-Public Use
  Company Number: US-BAYER-2011-067675

PATIENT
  Age: 41 Year
  Sex: Female
  Weight: 78.912 kg

DRUGS (6)
  1. SORAFENIB (RAF KINASE INHIBITOR) [Suspect]
     Indication: SQUAMOUS CELL CARCINOMA
     Dosage: 400 MG, UNK
     Route: 048
     Dates: start: 20110630, end: 20110729
  2. COREG [Concomitant]
     Indication: HYPERTENSION
     Dosage: 3.125 MG, BID
     Dates: start: 20090101
  3. ERLOTINIB HYDROCHLORIDE [Suspect]
     Indication: SQUAMOUS CELL CARCINOMA
     Dosage: 150 MG, UNK
     Route: 048
     Dates: start: 20110616, end: 20110729
  4. LORAZEPAM [Concomitant]
     Indication: ANXIETY
     Dosage: 0.5 MG, Q 4-8 HOURS
     Dates: start: 20110501
  5. CELEXA [Concomitant]
     Indication: DEPRESSION
     Dosage: 20 MG, QD
     Dates: start: 20110301
  6. NEXIUM [Concomitant]
     Indication: GASTROOESOPHAGEAL REFLUX DISEASE
     Dosage: 40 MG, QD
     Dates: start: 20090101

REACTIONS (2)
  - DEHYDRATION [None]
  - TACHYCARDIA [None]
